FAERS Safety Report 17995380 (Version 1)
Quarter: 2020Q3

REPORT INFORMATION
  Report Type: Report from Study
  Country: BR (occurrence: BR)
  Receive Date: 20200708
  Receipt Date: 20200708
  Transmission Date: 20201103
  Serious: Yes (Hospitalization, Other)
  Sender: FDA-Public Use
  Company Number: NVSC2020BR189874

PATIENT
  Age: 78 Year
  Sex: Female

DRUGS (12)
  1. ENTRESTO [Suspect]
     Active Substance: SACUBITRIL\VALSARTAN
     Dosage: 2 DF, QD (97/103MG), (97 MG SACUBITRIL /103 MG VALSARTAN)? 200MG
     Route: 065
     Dates: start: 20200303
  2. BISOPROLOL [Concomitant]
     Active Substance: BISOPROLOL
     Indication: PRODUCT USED FOR UNKNOWN INDICATION
     Dosage: 5 MG
     Route: 065
     Dates: start: 202002
  3. CAPTOPRIL. [Suspect]
     Active Substance: CAPTOPRIL
     Indication: PRODUCT USED FOR UNKNOWN INDICATION
     Route: 065
  4. LOSARTAN. [Suspect]
     Active Substance: LOSARTAN
     Indication: PRODUCT USED FOR UNKNOWN INDICATION
     Route: 065
  5. FUROSEMIDE. [Suspect]
     Active Substance: FUROSEMIDE
     Indication: RENAL DISORDER
     Dosage: 40 MG, BID
     Route: 065
     Dates: start: 2012
  6. ENTRESTO [Suspect]
     Active Substance: SACUBITRIL\VALSARTAN
     Indication: CARDIAC FAILURE
     Dosage: UNK 24MG ((24 MG SACUBITRIL /26 MG VALSARTAN) ? 50MG)
     Route: 065
     Dates: start: 20190823, end: 201909
  7. APRESOLINA [Suspect]
     Active Substance: HYDRALAZINE HYDROCHLORIDE
     Indication: PRODUCT USED FOR UNKNOWN INDICATION
     Dosage: 50 MG, OT (STARTED 3 YEARS AGO)
     Route: 065
  8. ENTRESTO [Suspect]
     Active Substance: SACUBITRIL\VALSARTAN
     Dosage: UNK 49/51MG (49 MG SACUBITRIL AND 51 MG VALSARTAN)? 100MG)
     Route: 065
     Dates: start: 201909, end: 202002
  9. COLCHICINE. [Suspect]
     Active Substance: COLCHICINE
     Indication: GOUT
     Dosage: 0.5 MG
     Route: 065
     Dates: start: 20200529, end: 20200602
  10. MONOCORDIL [Concomitant]
     Active Substance: ISOSORBIDE MONONITRATE
     Indication: PRODUCT USED FOR UNKNOWN INDICATION
     Dosage: UNK
     Route: 065
  11. INSULIN [Concomitant]
     Active Substance: INSULIN NOS
     Indication: DIABETES MELLITUS
     Dosage: UNK
     Route: 065
     Dates: start: 2016
  12. MELOXICAM. [Suspect]
     Active Substance: MELOXICAM
     Indication: GOUT
     Dosage: 15 MG
     Route: 065
     Dates: start: 20200529, end: 20200702

REACTIONS (13)
  - Blood pressure increased [Unknown]
  - Cardiac failure [Unknown]
  - Pain in extremity [Recovering/Resolving]
  - Gout [Recovering/Resolving]
  - Dyspnoea [Recovered/Resolved]
  - Vomiting [Unknown]
  - Sputum discoloured [Unknown]
  - Dyspnoea [Recovering/Resolving]
  - Malaise [Unknown]
  - Fatigue [Recovering/Resolving]
  - Pulmonary oedema [Unknown]
  - Fatigue [Recovered/Resolved]
  - Blood uric acid increased [Unknown]

NARRATIVE: CASE EVENT DATE: 20200131
